FAERS Safety Report 24681931 (Version 1)
Quarter: 2024Q4

REPORT INFORMATION
  Report Type: Spontaneous
  Country: IT (occurrence: IT)
  Receive Date: 20241130
  Receipt Date: 20241130
  Transmission Date: 20250115
  Serious: Yes (Other)
  Sender: ALEXION PHARMACEUTICALS
  Company Number: IT-AstraZeneca-CH-00751973A

PATIENT
  Age: 50 Year

DRUGS (3)
  1. TICAGRELOR [Suspect]
     Active Substance: TICAGRELOR
     Indication: Myocardial infarction
     Dosage: 90 MILLIGRAM, BID
  2. TICAGRELOR [Suspect]
     Active Substance: TICAGRELOR
     Indication: Blood pressure measurement
     Dosage: 60 MILLIGRAM, BID
  3. TICAGRELOR [Suspect]
     Active Substance: TICAGRELOR
     Indication: Blood cholesterol

REACTIONS (1)
  - Myocardial infarction [Unknown]
